FAERS Safety Report 5112293-6 (Version None)
Quarter: 2006Q3

REPORT INFORMATION
  Report Type: 
  Country: None (occurrence: None)
  Receive Date: 20060922
  Receipt Date: 20060613
  Transmission Date: 20061208
  Serious: No
  Sender: FDA-Public Use
  Company Number: US-GLAXOSMITHKLINE-A0608799A

PATIENT
  Age: 58 Year
  Sex: Female

DRUGS (2)
  1. ABREVA [Suspect]
     Dates: start: 20060603, end: 20060610
  2. VASELINE [Concomitant]

REACTIONS (7)
  - CHEILITIS [None]
  - HERPES SIMPLEX [None]
  - HYPERSENSITIVITY [None]
  - LIP BLISTER [None]
  - LIP EXFOLIATION [None]
  - LIP PAIN [None]
  - SKIN IRRITATION [None]
